FAERS Safety Report 16503509 (Version 1)
Quarter: 2019Q2

REPORT INFORMATION
  Report Type: Spontaneous
  Country: US (occurrence: US)
  Receive Date: 20190521
  Receipt Date: 20190521
  Transmission Date: 20190711
  Serious: Yes (Life-Threatening)
  Sender: FDA-Public Use
  Company Number: None

PATIENT
  Age: 31 Year
  Sex: Female
  Weight: 59.88 kg

DRUGS (1)
  1. BUPRENORPHINE 8MG [Suspect]
     Active Substance: BUPRENORPHINE
     Indication: ABORTION SPONTANEOUS
     Route: 060
     Dates: start: 20190101

REACTIONS (1)
  - Abortion spontaneous [None]

NARRATIVE: CASE EVENT DATE: 20190201
